FAERS Safety Report 6885656-6 (Version None)
Quarter: 2010Q3

REPORT INFORMATION
  Report Type: 
  Country: None (occurrence: None)
  Receive Date: 20100729
  Receipt Date: 20080613
  Transmission Date: 20110219
  Serious: Yes (Other)
  Sender: FDA-Public Use
  Company Number: US-PFIZER INC-2008037234

PATIENT
  Sex: Male
  Weight: 79.4 kg

DRUGS (2)
  1. CELEBREX [Suspect]
     Indication: ANTIINFLAMMATORY THERAPY
     Route: 048
     Dates: start: 20080403, end: 20080407
  2. LYRICA [Suspect]
     Indication: PAIN
     Route: 048
     Dates: start: 20080403, end: 20080407

REACTIONS (2)
  - PRURITUS [None]
  - RASH PAPULAR [None]
